FAERS Safety Report 7769718-7 (Version None)
Quarter: 2011Q3

REPORT INFORMATION
  Report Type: 
  Country: None (occurrence: None)
  Receive Date: 20110922
  Receipt Date: 20110121
  Transmission Date: 20111222
  Serious: Yes (Hospitalization)
  Sender: FDA-Public Use
  Company Number: US-ASTRAZENECA-2011SE03877

PATIENT
  Sex: Female

DRUGS (1)
  1. SEROQUEL XR [Suspect]
     Indication: DEPRESSION
     Route: 048
     Dates: start: 20101201

REACTIONS (7)
  - HALLUCINATION [None]
  - CONVULSION [None]
  - FALL [None]
  - COORDINATION ABNORMAL [None]
  - DYSARTHRIA [None]
  - BALANCE DISORDER [None]
  - TREMOR [None]
